FAERS Safety Report 22541682 (Version 1)
Quarter: 2023Q2

REPORT INFORMATION
  Report Type: Spontaneous
  Country: CN (occurrence: None)
  Receive Date: 20230609
  Receipt Date: 20230609
  Transmission Date: 20230722
  Serious: Yes (Death)
  Sender: FDA-Public Use
  Company Number: 2023A133025

PATIENT
  Age: 68 Year
  Sex: Male
  Weight: 71 kg

DRUGS (1)
  1. IMFINZI [Suspect]
     Active Substance: DURVALUMAB
     Indication: Non-small cell lung cancer stage III
     Dosage: 740MG / PERIOD
     Dates: start: 20220825, end: 20220913

REACTIONS (1)
  - Death [Fatal]
